FAERS Safety Report 9386793 (Version 1)
Quarter: 2013Q3

REPORT INFORMATION
  Report Type: Spontaneous
  Country: CN (occurrence: None)
  Receive Date: 20130702
  Receipt Date: 20130702
  Transmission Date: 20140515
  Serious: Yes (Hospitalization)
  Sender: FDA-Public Use
  Company Number: 2013000147

PATIENT
  Age: 79 Year
  Sex: Male
  Weight: 67.5 kg

DRUGS (1)
  1. ACEON [Suspect]
     Indication: HYPERTENSION
     Route: 048
     Dates: start: 20120601, end: 20121215

REACTIONS (2)
  - Pneumonia [None]
  - Cough [None]
